FAERS Safety Report 10013627 (Version 1)
Quarter: 2014Q1

REPORT INFORMATION
  Report Type: Spontaneous
  Country: US (occurrence: US)
  Receive Date: 20140315
  Receipt Date: 20140315
  Transmission Date: 20141002
  Serious: No
  Sender: FDA-Public Use
  Company Number: US-B.I. PHARMACEUTICALS,INC./RIDGEFIELD-2014-BI-10457BP

PATIENT
  Sex: Male
  Weight: 65 kg

DRUGS (2)
  1. COMBIVENT [Suspect]
     Indication: PRODUCT USED FOR UNKNOWN INDICATION
     Dosage: STRENGTH: 20 MCG / 100 MCG; DAILY DOSE: 160 MCG/800 MCG
     Route: 055
     Dates: start: 2012
  2. ADVAIR [Concomitant]
     Dosage: 2 PUF
     Route: 055

REACTIONS (1)
  - Overdose [Not Recovered/Not Resolved]
